FAERS Safety Report 7622358-2 (Version None)
Quarter: 2011Q3

REPORT INFORMATION
  Report Type: 
  Country: None (occurrence: None)
  Receive Date: 20110715
  Receipt Date: 20110715
  Transmission Date: 20111222
  Serious: No
  Sender: FDA-Public Use
  Company Number: None

PATIENT
  Sex: Female

DRUGS (1)
  1. DOXYCYCLINE [Suspect]
     Indication: ACNE
     Dosage: 50MG BID ORAL
     Route: 048
     Dates: start: 20110606

REACTIONS (1)
  - VULVOVAGINAL CANDIDIASIS [None]
